FAERS Safety Report 25566583 (Version 1)
Quarter: 2025Q3

REPORT INFORMATION
  Report Type: Spontaneous
  Country: US (occurrence: US)
  Receive Date: 20250716
  Receipt Date: 20250716
  Transmission Date: 20251021
  Serious: No
  Sender: SANOFI AVENTIS
  Company Number: US-SA-2025SA200497

PATIENT
  Sex: Male

DRUGS (6)
  1. DUPIXENT [Suspect]
     Active Substance: DUPILUMAB
     Indication: Dermatitis atopic
     Dosage: 300 MG, QOW
     Route: 058
  2. FLUTICASONE [Concomitant]
     Active Substance: FLUTICASONE
  3. LISINOPRIL [Concomitant]
     Active Substance: LISINOPRIL
  4. METOPROLOL SUCCINATE [Concomitant]
     Active Substance: METOPROLOL SUCCINATE
  5. MOUNJARO [Concomitant]
     Active Substance: TIRZEPATIDE
  6. SPIRONOLACTONE [Concomitant]
     Active Substance: SPIRONOLACTONE

REACTIONS (2)
  - Injection site discomfort [Unknown]
  - Dry skin [Recovering/Resolving]
